FAERS Safety Report 7211242-4 (Version None)
Quarter: 2011Q1

REPORT INFORMATION
  Report Type: 
  Country: None (occurrence: None)
  Receive Date: 20110105
  Receipt Date: 20101231
  Transmission Date: 20110831
  Serious: Yes (Other)
  Sender: FDA-Public Use
  Company Number: IT-JNJFOC-20110100373

PATIENT
  Age: 37 Year
  Sex: Male

DRUGS (3)
  1. HALDOL [Suspect]
     Indication: ILL-DEFINED DISORDER
     Route: 048
  2. SERTRALIN HEXAL [Suspect]
     Indication: ILL-DEFINED DISORDER
     Route: 048
  3. DEPAKENE [Suspect]
     Indication: ILL-DEFINED DISORDER
     Route: 048

REACTIONS (1)
  - SELF INJURIOUS BEHAVIOUR [None]
